FAERS Safety Report 5662692-9 (Version None)
Quarter: 2008Q1

REPORT INFORMATION
  Report Type: 
  Country: None (occurrence: None)
  Receive Date: 20080313
  Receipt Date: 20080305
  Transmission Date: 20080703
  Serious: Yes (Life-Threatening)
  Sender: FDA-Public Use
  Company Number: CO-ABBOTT-08P-036-0439354-00

PATIENT
  Sex: Female
  Weight: 78 kg

DRUGS (5)
  1. HUMIRA [Suspect]
     Indication: ANKYLOSING SPONDYLITIS
     Route: 030
     Dates: start: 20070716
  2. ENALAPRIL MALEATE [Concomitant]
     Indication: HYPERTENSION
     Route: 048
     Dates: start: 20060101
  3. HYDROCHLOROTHIAZIDE [Concomitant]
     Indication: HYPERTENSION
     Route: 048
     Dates: start: 20060101
  4. HALLOPURINOL [Concomitant]
     Indication: HYPERURICAEMIA
     Route: 048
  5. ACETAMINOPHEN [Concomitant]
     Indication: ANALGESIA
     Route: 048
     Dates: start: 20071101

REACTIONS (7)
  - ANKYLOSING SPONDYLITIS [None]
  - BACK PAIN [None]
  - LUMBAR HERNIA [None]
  - MANTLE CELL LYMPHOMA [None]
  - MOVEMENT DISORDER [None]
  - RADICULOPATHY [None]
  - SYNOVIAL CYST [None]
